FAERS Safety Report 5620048-9 (Version None)
Quarter: 2008Q1

REPORT INFORMATION
  Report Type: 
  Country: None (occurrence: None)
  Receive Date: 20080208
  Receipt Date: 20080206
  Transmission Date: 20080703
  Serious: No
  Sender: FDA-Public Use
  Company Number: US-JNJFOC-20080201711

PATIENT
  Sex: Male

DRUGS (4)
  1. RISPERDAL [Suspect]
     Indication: PSYCHOTIC DISORDER
     Route: 048
  2. PROXEN [Concomitant]
     Indication: PAIN
  3. VITAMIN B-12 [Concomitant]
     Indication: NUTRITIONAL SUPPORT
     Route: 048
  4. MAGNESIUM [Concomitant]
     Indication: NUTRITIONAL SUPPORT
     Route: 048

REACTIONS (1)
  - LEUKOPENIA [None]
